FAERS Safety Report 19530755 (Version 3)
Quarter: 2021Q4

REPORT INFORMATION
  Report Type: Report from Study
  Country: AT (occurrence: AT)
  Receive Date: 20210713
  Receipt Date: 20211117
  Transmission Date: 20220303
  Serious: Yes (Life-Threatening, Hospitalization, Other)
  Sender: FDA-Public Use
  Company Number: AT-GILEAD-2021-0539766

PATIENT
  Age: 60 Year
  Sex: Male
  Weight: 83 kg

DRUGS (6)
  1. BREXUCABTAGENE AUTOLEUCEL [Suspect]
     Active Substance: BREXUCABTAGENE AUTOLEUCEL
     Indication: Mantle cell lymphoma
     Dosage: 2X10^6 CELLS PER KG BODY WEIGHT, ONCE
     Route: 042
     Dates: start: 20210621, end: 20210621
  2. BISOPROLOL FUMARATE [Concomitant]
     Active Substance: BISOPROLOL FUMARATE
     Indication: Atrial fibrillation
     Dosage: 2.5 MG, QD
     Route: 048
  3. ESOMEPRAZOLE [Concomitant]
     Active Substance: ESOMEPRAZOLE
     Indication: Gastritis
     Dosage: 20 MG, QD
     Route: 048
  4. VALACYCLOVIR HYDROCHLORIDE [Concomitant]
     Active Substance: VALACYCLOVIR HYDROCHLORIDE
     Indication: Infection prophylaxis
     Dosage: 500 MG, QD
     Route: 048
  5. SULFAMETROLE\TRIMETHOPRIM [Concomitant]
     Active Substance: SULFAMETROLE\TRIMETHOPRIM
     Indication: Infection prophylaxis
     Dosage: UNK
  6. ERYTHROPOIETIN [Concomitant]
     Active Substance: ERYTHROPOIETIN
     Indication: Anaemia of chronic disease
     Dosage: 30.000 IU, UNK
     Route: 058

REACTIONS (7)
  - Disease progression [Not Recovered/Not Resolved]
  - Neurotoxicity [Recovered/Resolved]
  - Speech disorder [Recovered/Resolved]
  - Loss of consciousness [Unknown]
  - Shunt infection [Unknown]
  - Cytopenia [Recovered/Resolved]
  - Cerebral disorder [Unknown]

NARRATIVE: CASE EVENT DATE: 20210101
